FAERS Safety Report 7566101-4 (Version None)
Quarter: 2011Q2

REPORT INFORMATION
  Report Type: 
  Country: None (occurrence: None)
  Receive Date: 20110623
  Receipt Date: 20110207
  Transmission Date: 20111010
  Serious: No
  Sender: FDA-Public Use
  Company Number: US-MUTUAL PHARMACEUTICAL COMPANY, INC.-MTCP20110175

PATIENT
  Sex: 0

DRUGS (3)
  1. METOCLOPRAMIDE [Suspect]
     Indication: PRODUCT USED FOR UNKNOWN INDICATION
     Route: 048
     Dates: start: 20030601, end: 20040301
  2. METOCLOPRAMIDE [Suspect]
     Indication: PRODUCT USED FOR UNKNOWN INDICATION
     Route: 048
     Dates: start: 20030601, end: 20040301
  3. REGLAN [Suspect]
     Indication: PRODUCT USED FOR UNKNOWN INDICATION
     Route: 048
     Dates: start: 20030601, end: 20040301

REACTIONS (4)
  - PROTRUSION TONGUE [None]
  - PARKINSON'S DISEASE [None]
  - DYSKINESIA [None]
  - RESTLESS LEGS SYNDROME [None]
